FAERS Safety Report 12701891 (Version 1)
Quarter: 2016Q3

REPORT INFORMATION
  Report Type: Spontaneous
  Country: US (occurrence: US)
  Receive Date: 20160831
  Receipt Date: 20160831
  Transmission Date: 20161109
  Serious: No
  Sender: FDA-Public Use
  Company Number: US-JAZZ-2016-US-007272

PATIENT
  Sex: Female

DRUGS (20)
  1. NAPROSYN EC [Concomitant]
  2. IMIPRAMINE HCL [Concomitant]
     Active Substance: IMIPRAMINE HYDROCHLORIDE
  3. CYMBALTA [Concomitant]
     Active Substance: DULOXETINE HYDROCHLORIDE
  4. HYDROCHLOROTHIAZIDE. [Concomitant]
     Active Substance: HYDROCHLOROTHIAZIDE
  5. METFORMIN HYDROCHLORIDE. [Concomitant]
     Active Substance: METFORMIN HYDROCHLORIDE
  6. XYREM [Suspect]
     Active Substance: SODIUM OXYBATE
     Indication: NARCOLEPSY
     Dosage: 2.5 G, BID
     Route: 048
     Dates: start: 201602
  7. IRON [Concomitant]
     Active Substance: IRON
  8. PRILOSEC [Concomitant]
     Active Substance: OMEPRAZOLE MAGNESIUM
  9. NITROGLYCERIN ER [Concomitant]
     Active Substance: NITROGLYCERIN
  10. COREG CR [Concomitant]
     Active Substance: CARVEDILOL PHOSPHATE
  11. RANITIDINE. [Concomitant]
     Active Substance: RANITIDINE
  12. XYREM [Suspect]
     Active Substance: SODIUM OXYBATE
     Indication: CATAPLEXY
  13. PROVIGIL [Concomitant]
     Active Substance: MODAFINIL
  14. LISINOPRIL. [Concomitant]
     Active Substance: LISINOPRIL
  15. ZOFRAN [Concomitant]
     Active Substance: ONDANSETRON HYDROCHLORIDE
  16. LANTUS [Concomitant]
     Active Substance: INSULIN GLARGINE
  17. POTASSIUM BROMIDE [Concomitant]
     Active Substance: POTASSIUM BROMIDE
  18. LIPITOR [Concomitant]
     Active Substance: ATORVASTATIN CALCIUM
  19. AMARYL [Concomitant]
     Active Substance: GLIMEPIRIDE
  20. SYNTHROID [Concomitant]
     Active Substance: LEVOTHYROXINE SODIUM

REACTIONS (1)
  - Drug ineffective [Unknown]
